FAERS Safety Report 8616097-9 (Version None)
Quarter: 2012Q3

REPORT INFORMATION
  Report Type: 
  Country: None (occurrence: None)
  Receive Date: 20120823
  Receipt Date: 20120816
  Transmission Date: 20120928
  Serious: Yes (Hospitalization)
  Sender: FDA-Public Use
  Company Number: JP-B.I. PHARMACEUTICALS,INC./RIDGEFIELD-2012-EU-04043GD

PATIENT
  Age: 64 Year
  Sex: Male
  Weight: 50 kg

DRUGS (10)
  1. ACETYLSALICYLIC ACID SRT [Suspect]
     Indication: ANTICOAGULANT THERAPY
     Route: 048
  2. SUGAMMADEX [Concomitant]
     Dosage: 1 MG/KG
  3. PROPOFOL [Concomitant]
     Dosage: 10 MG/KG/H
  4. SARPOGRELATE HYDROCHLORIDE [Suspect]
     Indication: ANTICOAGULANT THERAPY
     Route: 048
  5. FENTANYL [Concomitant]
     Indication: PROCEDURAL PAIN
     Dosage: 25 MCG/H
  6. PRADAXA [Suspect]
     Indication: ATRIAL FIBRILLATION
     Route: 048
  7. ROCURONIUM BROMIDE [Concomitant]
     Dosage: 0.4 MG/KG
  8. PROPOFOL [Concomitant]
     Dosage: 2 - 8 MG/KG/H TO ENSURE BIS LEVELS {/=65
  9. HEPARIN SODIUM [Suspect]
     Dosage: 9000 U
  10. REMIFENTANIL [Concomitant]
     Dosage: 0.2 MCG/KG/MIN

REACTIONS (3)
  - HAEMORRHAGE [None]
  - ABSCESS INTESTINAL [None]
  - APPENDICITIS [None]
